FAERS Safety Report 9745903 (Version 1)
Quarter: 2013Q4

REPORT INFORMATION
  Report Type: Spontaneous
  Country: GB (occurrence: GB)
  Receive Date: 20131211
  Receipt Date: 20131211
  Transmission Date: 20140711
  Serious: Yes (Other)
  Sender: FDA-Public Use
  Company Number: GB-TEVA-449737ISR

PATIENT
  Age: 16 Year
  Sex: Male

DRUGS (1)
  1. AMITRIPTYLINE [Suspect]
     Indication: PAIN

REACTIONS (1)
  - Sleep paralysis [Unknown]
